FAERS Safety Report 5477543-5 (Version None)
Quarter: 2007Q4

REPORT INFORMATION
  Report Type: 
  Country: None (occurrence: None)
  Receive Date: 20071002
  Receipt Date: 20070726
  Transmission Date: 20080405
  Serious: Yes (Other)
  Sender: FDA-Public Use
  Company Number: 2007RR-09250

PATIENT
  Age: 59 Year
  Sex: Female

DRUGS (7)
  1. SIMVASTATIN [Suspect]
     Indication: DIABETES MELLITUS
     Dosage: 10 MG, ORAL
     Route: 048
     Dates: start: 20070711, end: 20070712
  2. CELECOXIB [Concomitant]
  3. CODEINE PHOSPHATE AND ACETAMINOPHEN [Concomitant]
  4. CO-TENIDONE (ATENOLOL, CHLORTALIDONE) [Concomitant]
  5. DOMPERIDONE (DOMPERIDONE) [Concomitant]
  6. RABEPRAZOLE SODIUM [Concomitant]
  7. TILIDEM LA (DILTIAZEM HYDROCHLORIDE) [Concomitant]

REACTIONS (2)
  - DIARRHOEA [None]
  - RECTAL HAEMORRHAGE [None]
